FAERS Safety Report 9843264 (Version 1)
Quarter: 2014Q1

REPORT INFORMATION
  Report Type: Spontaneous
  Country: TH (occurrence: TH)
  Receive Date: 20140124
  Receipt Date: 20140124
  Transmission Date: 20141002
  Serious: Yes (Life-Threatening, Hospitalization)
  Sender: FDA-Public Use
  Company Number: TH-B.I. PHARMACEUTICALS,INC./RIDGEFIELD-2014-BI-03397RT

PATIENT
  Age: 83 Year
  Sex: Male
  Weight: 54 kg

DRUGS (9)
  1. TRAJENTA [Suspect]
     Indication: TYPE 2 DIABETES MELLITUS
     Dosage: 5 MG
     Route: 048
     Dates: start: 20131009, end: 20131030
  2. TRAJENTA [Suspect]
     Indication: DIABETIC COMPLICATION
  3. MODURETIC / AMILORIDE AND HYDROCHLOROTHIAZIDE [Concomitant]
  4. PLAVIX / CLOPIDOGREL [Concomitant]
     Dosage: 75 MG
  5. ASPIRIN GRAINS [Concomitant]
  6. CONTROLOC / PANTOPRAZOLE [Concomitant]
     Dosage: 40 MG
  7. AMARYL / GLIMEPIRIDE [Concomitant]
     Dosage: 2 MG
  8. LIPITOR / ATORVASTATIN [Concomitant]
  9. MADIPLOT / MANIDIPINE [Concomitant]
     Dosage: 20 MG

REACTIONS (1)
  - Hepatocellular carcinoma [Unknown]
